FAERS Safety Report 4528307-8 (Version None)
Quarter: 2004Q4

REPORT INFORMATION
  Report Type: 
  Country: None (occurrence: None)
  Receive Date: 20041130
  Receipt Date: 20040813
  Transmission Date: 20050328
  Serious: No
  Sender: FDA-Public Use
  Company Number: WAES0408USA01192

PATIENT
  Age: 68 Year
  Sex: Male

DRUGS (6)
  1. ZETIA [Suspect]
     Indication: BLOOD CHOLESTEROL INCREASED
     Dosage: 10 MG DAILY PO
     Route: 048
  2. ZETIA [Suspect]
     Indication: HIGH DENSITY LIPOPROTEIN DECREASED
     Dosage: 10 MG DAILY PO
     Route: 048
  3. ZOCOR [Suspect]
  4. NORVASC [Concomitant]
  5. ACETUTOLOL [Concomitant]
  6. STATIN [Concomitant]

REACTIONS (1)
  - MYALGIA [None]
